FAERS Safety Report 24835018 (Version 1)
Quarter: 2025Q1

REPORT INFORMATION
  Report Type: Spontaneous
  Country: FR (occurrence: FR)
  Receive Date: 20250113
  Receipt Date: 20250113
  Transmission Date: 20250409
  Serious: Yes (Hospitalization)
  Sender: NORDIC PHARMA
  Company Number: None

PATIENT
  Age: 78 Year
  Sex: Female

DRUGS (7)
  1. METHOTREXATE SODIUM [Suspect]
     Active Substance: METHOTREXATE SODIUM
     Indication: Rheumatoid arthritis
     Dosage: IMETH? 17.5 MG EVERY FRIDAY UNTIL 22-OCT-2024, THEN 10 MG/WEEK FROM 23-OCT-2024 WITH MEDICATION E...
     Route: 048
     Dates: start: 202411, end: 202411
  2. {irbesartan 150 mg / hydrochlorothiazide 12.5 mg} [Concomitant]
  3. ATORVASTATIN [Concomitant]
     Active Substance: ATORVASTATIN
     Dosage: ATORVASTATIN 40 MG IN THE EVENING
  4. DOLIPRANE 500 mg in the morning, midday and evening [Concomitant]
  5. CLOPIDOGREL [Concomitant]
     Active Substance: CLOPIDOGREL BISULFATE
     Dosage: CLOPIDOGREL 75 MG IN THE MORNING
  6. OMEPRAZOLE [Concomitant]
     Active Substance: OMEPRAZOLE
     Dosage: OMEPRAZOLE 20 MG AT BEDTIME
  7. Teriparatide 20 ?g [Concomitant]
     Dosage: TERIPARATIDE 20 ?G, 1 PEN/DAY

REACTIONS (3)
  - Bone marrow failure [Recovered/Resolved]
  - Product prescribing error [Recovered/Resolved]
  - Accidental overdose [Recovered/Resolved]

NARRATIVE: CASE EVENT DATE: 20241101
